FAERS Safety Report 8954439 (Version 1)
Quarter: 2012Q4

REPORT INFORMATION
  Report Type: 
  Country: NL (occurrence: NL)
  Receive Date: 20121210
  Receipt Date: 20121210
  Transmission Date: 20130627
  Serious: Yes (Other)
  Sender: FDA-Public Use
  Company Number: PHHY2012NL092096

PATIENT
  Sex: Female

DRUGS (10)
  1. ZOMETA [Suspect]
     Indication: BREAST CANCER METASTATIC
     Dosage: 4 mg, per 100ml once per 28 days
     Route: 042
     Dates: start: 20120610
  2. ZOMETA [Suspect]
     Dosage: 4 mg per 100ml once per 28 days
     Route: 042
     Dates: start: 20120919, end: 20120919
  3. ANASTROZOLE [Concomitant]
  4. DICLOFENAC [Concomitant]
  5. ESOMEPRAZOLE [Concomitant]
  6. PARACETAMOL [Concomitant]
  7. CODEINE [Concomitant]
  8. TAMOXIFEN [Concomitant]
  9. NEXIUM 1-2-3 [Concomitant]
  10. QVAR [Concomitant]

REACTIONS (3)
  - Pneumonia [Unknown]
  - General physical health deterioration [Unknown]
  - Malaise [Unknown]
